FAERS Safety Report 15636412 (Version 8)
Quarter: 2019Q2

REPORT INFORMATION
  Report Type: Spontaneous
  Country: PL (occurrence: PL)
  Receive Date: 20181120
  Receipt Date: 20190521
  Transmission Date: 20190711
  Serious: Yes (Hospitalization, Disabling, Other)
  Sender: FDA-Public Use
  Company Number: PL-AUROBINDO-AUR-APL-2018-056104

PATIENT

DRUGS (17)
  1. VENLAFAXINE [Interacting]
     Active Substance: VENLAFAXINE HYDROCHLORIDE
     Indication: DEPRESSION
     Dosage: 225 MILLIGRAM, ONCE A DAY (DAILY DOSE: 225 MG)
     Route: 065
  2. VENLAFAXINE [Interacting]
     Active Substance: VENLAFAXINE HYDROCHLORIDE
     Dosage: 75 MILLIGRAM, ONCE A DAY
     Route: 065
  3. MIANSERIN [Interacting]
     Active Substance: MIANSERIN
     Dosage: INITIAL DOSE
     Route: 065
  4. METFORMIN [Concomitant]
     Active Substance: METFORMIN HYDROCHLORIDE
     Indication: TYPE 2 DIABETES MELLITUS
     Dosage: 2000 MILLIGRAM, ONCE A DAY
     Route: 065
  5. GABAPENTIN. [Suspect]
     Active Substance: GABAPENTIN
     Indication: GLOSSODYNIA
     Dosage: 900 MILLIGRAM, ONCE A DAY (300 MG 3 TIMES IN DAY)
     Route: 065
  6. VENLAFAXINE [Interacting]
     Active Substance: VENLAFAXINE HYDROCHLORIDE
     Dosage: THEN THE DOSE INCREASED TO 225 MG DAILY
     Route: 065
  7. VENLAFAXINE [Interacting]
     Active Substance: VENLAFAXINE HYDROCHLORIDE
     Dosage: INITIAL DOSE
     Route: 065
  8. PARACETAMOL;TRAMADOL [Interacting]
     Active Substance: ACETAMINOPHEN\TRAMADOL
     Indication: GLOSSODYNIA
     Dosage: (75 MG + 650 MG IN ONE TABLET RESPECTIVELY)
     Route: 065
  9. TRAZODONE [Concomitant]
     Active Substance: TRAZODONE HYDROCHLORIDE
     Indication: PRODUCT USED FOR UNKNOWN INDICATION
     Dosage: UNK
     Route: 065
  10. LORAZEPAM. [Suspect]
     Active Substance: LORAZEPAM
     Indication: PRODUCT USED FOR UNKNOWN INDICATION
     Dosage: UNK
     Route: 065
  11. MIANSERIN [Interacting]
     Active Substance: MIANSERIN
     Indication: SLEEP DISORDER
     Dosage: 10 MILLIGRAM, ONCE A DAY (INITIALLY 10 MG BEFORE SLEEP)
     Route: 065
  12. VORTIOXETINE. [Concomitant]
     Active Substance: VORTIOXETINE
     Indication: PRODUCT USED FOR UNKNOWN INDICATION
     Dosage: UNK
     Route: 065
  13. ALPRAZOLAM. [Suspect]
     Active Substance: ALPRAZOLAM
     Indication: PRODUCT USED FOR UNKNOWN INDICATION
     Dosage: UNK
     Route: 065
  14. TRAMADOL. [Suspect]
     Active Substance: TRAMADOL
     Indication: GLOSSODYNIA
     Dosage: 75 MG + 650 MG IN ONE TABLET RESPECTIVELY
     Route: 065
  15. MIANSERIN [Interacting]
     Active Substance: MIANSERIN
     Indication: DEPRESSION
     Dosage: 30 MILLIGRAM, ONCE A DAY
     Route: 065
  16. MIANSERIN [Interacting]
     Active Substance: MIANSERIN
     Dosage: 10 MILLIGRAM, ONCE A DAY (THEN THE DOSE INCREASED TO 30 MG DAILY)
     Route: 065
  17. CLONAZEPAM. [Concomitant]
     Active Substance: CLONAZEPAM
     Indication: PRODUCT USED FOR UNKNOWN INDICATION
     Dosage: UNK
     Route: 065

REACTIONS (19)
  - Fatigue [Unknown]
  - Diabetes mellitus [Unknown]
  - Condition aggravated [Not Recovered/Not Resolved]
  - Drug interaction [Recovered/Resolved]
  - Increased appetite [Unknown]
  - Dizziness [Unknown]
  - Sleep disorder [Unknown]
  - Blood glucose increased [Unknown]
  - Off label use [Unknown]
  - Therapeutic product effect incomplete [Recovered/Resolved]
  - Drug dependence [Unknown]
  - Glossodynia [Recovered/Resolved]
  - Hyperhidrosis [Unknown]
  - Toxicity to various agents [Unknown]
  - Loss of personal independence in daily activities [Unknown]
  - Pain [Recovered/Resolved]
  - Blood glucose abnormal [Unknown]
  - Sedation complication [Unknown]
  - Glossitis [Unknown]
